FAERS Safety Report 13018158 (Version 1)
Quarter: 2016Q4

REPORT INFORMATION
  Report Type: Spontaneous
  Country: US (occurrence: US)
  Receive Date: 20161212
  Receipt Date: 20161212
  Transmission Date: 20170207
  Serious: No
  Sender: FDA-Public Use
  Company Number: US-LPDUSPRD-20160028

PATIENT
  Age: 42 Year
  Sex: Female

DRUGS (5)
  1. ADVIL [Concomitant]
     Active Substance: IBUPROFEN
     Dosage: AS NEEDED
     Route: 048
  2. PRILOSEC (DELAYED RELEASE) [Concomitant]
     Dosage: 20 MG; 1 TAB DAILY
     Route: 048
  3. VENOFER [Suspect]
     Active Substance: IRON SUCROSE
     Dosage: 400 MG IN 30 MINUTES
     Route: 042
     Dates: start: 20160112, end: 20160112
  4. CALCITRIOL. [Concomitant]
     Active Substance: CALCITRIOL
     Dosage: 0.25 MCG; 1 DF MON/WED/FRI
     Route: 048
     Dates: start: 20130213
  5. BENAZEPRIL HCL [Concomitant]
     Active Substance: BENAZEPRIL HYDROCHLORIDE
     Dosage: 20 MG; 1 TAB DAILY
     Route: 048
     Dates: start: 20110519

REACTIONS (5)
  - Urticaria [Recovered/Resolved]
  - Pruritus [Recovered/Resolved]
  - Oedema peripheral [Recovered/Resolved]
  - Incorrect drug administration rate [Recovered/Resolved]
  - Hypersensitivity [Recovered/Resolved]

NARRATIVE: CASE EVENT DATE: 20160112
